FAERS Safety Report 9096562 (Version 3)
Quarter: 2013Q4

REPORT INFORMATION
  Report Type: Spontaneous
  Country: GB (occurrence: GB)
  Receive Date: 20130211
  Receipt Date: 20131204
  Transmission Date: 20140711
  Serious: Yes (Congenital Anomaly)
  Sender: FDA-Public Use
  Company Number: PHHY2013GB011216

PATIENT
  Sex: Male

DRUGS (21)
  1. HALOPERIDOL [Suspect]
     Indication: MATERNAL EXPOSURE BEFORE PREGNANCY
     Route: 064
  2. HALOPERIDOL [Suspect]
     Route: 064
  3. ISTIN [Suspect]
     Indication: MATERNAL EXPOSURE BEFORE PREGNANCY
     Route: 064
  4. ISTIN [Suspect]
     Route: 064
  5. DISIPAL [Suspect]
     Indication: MATERNAL EXPOSURE BEFORE PREGNANCY
     Route: 064
  6. DISIPAL [Suspect]
     Route: 064
  7. DEPIXOL [Suspect]
     Indication: MATERNAL EXPOSURE BEFORE PREGNANCY
     Route: 064
  8. DEPIXOL [Suspect]
     Route: 064
  9. VALIUM [Suspect]
     Indication: MATERNAL EXPOSURE BEFORE PREGNANCY
     Route: 064
  10. VALIUM [Suspect]
     Route: 064
  11. RELACTON-C [Suspect]
     Indication: MATERNAL EXPOSURE BEFORE PREGNANCY
     Route: 064
  12. RELACTON-C [Suspect]
     Route: 064
  13. KEMADRIN [Suspect]
     Indication: MATERNAL EXPOSURE BEFORE PREGNANCY
     Route: 064
  14. KEMADRIN [Suspect]
     Route: 064
  15. NORMAXIN [Suspect]
     Indication: MATERNAL EXPOSURE BEFORE PREGNANCY
     Route: 064
  16. NORMAXIN [Suspect]
     Route: 064
  17. SURMONTIL [Suspect]
     Indication: MATERNAL EXPOSURE BEFORE PREGNANCY
     Route: 064
  18. SURMONTIL [Suspect]
     Route: 064
  19. SPARINE [Suspect]
     Indication: MATERNAL EXPOSURE BEFORE PREGNANCY
     Route: 064
  20. SPARINE [Suspect]
     Route: 064
  21. DROLEPTAN [Suspect]
     Indication: MATERNAL EXPOSURE BEFORE PREGNANCY
     Dosage: UNK
     Route: 064

REACTIONS (3)
  - Blindness transient [Recovered/Resolved]
  - Learning disability [Unknown]
  - Maternal exposure before pregnancy [Unknown]
